FAERS Safety Report 10015233 (Version 5)
Quarter: 2014Q2

REPORT INFORMATION
  Report Type: Spontaneous
  Country: US (occurrence: US)
  Receive Date: 20140317
  Receipt Date: 20140418
  Transmission Date: 20141212
  Serious: Yes (Other)
  Sender: FDA-Public Use
  Company Number: US-PFIZER INC-2014035412

PATIENT
  Sex: Female

DRUGS (2)
  1. NORPACE CR [Suspect]
     Dosage: UNK
  2. SPIRIVA [Concomitant]
     Indication: ASTHMA
     Dosage: UNK

REACTIONS (2)
  - Dyspnoea [Unknown]
  - Intercepted drug dispensing error [Unknown]
